FAERS Safety Report 17625393 (Version 1)
Quarter: 2020Q2

REPORT INFORMATION
  Report Type: Spontaneous
  Country: ES (occurrence: ES)
  Receive Date: 20200403
  Receipt Date: 20200403
  Transmission Date: 20200713
  Serious: Yes (Other)
  Sender: FDA-Public Use
  Company Number: ES-AUROBINDO-AUR-APL-2020-016544

PATIENT
  Age: 55 Year
  Sex: Female

DRUGS (1)
  1. AMOXICILLIN / CLAVULANIC ACID FILM-COATED TABLETS 875/125MG [Suspect]
     Active Substance: AMOXICILLIN\CLAVULANIC ACID
     Indication: FISTULA
     Dosage: 1 DOSAGE FORM, 3 TIMES A DAY
     Route: 048
     Dates: start: 20200312, end: 20200312

REACTIONS (3)
  - Pruritus [Recovered/Resolved]
  - Rash [Recovered/Resolved]
  - Respiratory distress [Recovered/Resolved]

NARRATIVE: CASE EVENT DATE: 20200312
